FAERS Safety Report 9426245 (Version 1)
Quarter: 2013Q3

REPORT INFORMATION
  Report Type: Spontaneous
  Country: US (occurrence: US)
  Receive Date: 20130730
  Receipt Date: 20130730
  Transmission Date: 20140515
  Serious: No
  Sender: FDA-Public Use
  Company Number: US-009507513-1307USA004228

PATIENT
  Sex: Female
  Weight: 90.7 kg

DRUGS (10)
  1. VICTRELIS [Suspect]
     Dosage: 4 CAPSULES (800 MG), THREE TIMES A DAY, EVERY 7-9 HOURS
     Route: 048
  2. PEGASYS [Suspect]
     Dosage: 180 MICROGRAM /M
  3. REBETOL [Suspect]
  4. PRILOSEC [Concomitant]
  5. NIFEDIPINE [Concomitant]
  6. AMITRIPTYLIN [Concomitant]
  7. BYSTOLIC [Concomitant]
  8. OMEGA-3 MARINE TRIGLYCERIDES [Concomitant]
  9. VITAMINS (UNSPECIFIED) [Concomitant]
  10. ADIPEX-P [Concomitant]

REACTIONS (1)
  - Fatigue [Unknown]
